FAERS Safety Report 5941515-4 (Version None)
Quarter: 2008Q4

REPORT INFORMATION
  Report Type: 
  Country: None (occurrence: None)
  Receive Date: 20081103
  Receipt Date: 20081103
  Transmission Date: 20090506
  Serious: Yes (Other)
  Sender: FDA-Public Use
  Company Number: None

PATIENT
  Sex: Female
  Weight: 46.7205 kg

DRUGS (1)
  1. RECLAST [Suspect]
     Indication: OSTEOPOROSIS
     Dosage: YEARLY IV
     Route: 042

REACTIONS (11)
  - CONDITION AGGRAVATED [None]
  - DRY EYE [None]
  - EYE INFECTION [None]
  - EYE PAIN [None]
  - EYE SWELLING [None]
  - EYELID DISORDER [None]
  - OCULAR HYPERAEMIA [None]
  - SKIN EXFOLIATION [None]
  - SUICIDAL IDEATION [None]
  - SUPERFICIAL INJURY OF EYE [None]
  - VISUAL IMPAIRMENT [None]
